FAERS Safety Report 13026708 (Version 1)
Quarter: 2016Q4

REPORT INFORMATION
  Report Type: Spontaneous
  Country: US (occurrence: US)
  Receive Date: 20161214
  Receipt Date: 20161214
  Transmission Date: 20170207
  Serious: No
  Sender: FDA-Public Use
  Company Number: US-APOTEX-2016AP008332

PATIENT
  Age: 41 Year
  Sex: Female

DRUGS (2)
  1. FENTANYL. [Suspect]
     Active Substance: FENTANYL
     Indication: NEURALGIA
     Dosage: (25 MCG/HR) 1 DF, EVERY 72 HOURS
     Route: 065
     Dates: start: 201602
  2. FENTANYL TRANSDERMAL SYSTEM [Suspect]
     Active Substance: FENTANYL
     Indication: NEURALGIA
     Dosage: (100MCG/HR) 1 DF, EVERY 72 HOURS
     Route: 062
     Dates: start: 201602

REACTIONS (5)
  - Product adhesion issue [Unknown]
  - Application site dryness [Unknown]
  - Product substitution issue [Unknown]
  - Feeling abnormal [Unknown]
  - Drug ineffective [Unknown]

NARRATIVE: CASE EVENT DATE: 201602
